FAERS Safety Report 6881230-6 (Version None)
Quarter: 2010Q3

REPORT INFORMATION
  Report Type: 
  Country: None (occurrence: None)
  Receive Date: 20100727
  Receipt Date: 20100719
  Transmission Date: 20110219
  Serious: No
  Sender: FDA-Public Use
  Company Number: US-BIOGENIDEC-2010BI024807

PATIENT
  Sex: Female

DRUGS (2)
  1. TYSABRI [Suspect]
     Indication: MULTIPLE SCLEROSIS
     Route: 042
     Dates: start: 20050124, end: 20050101
  2. TYSABRI [Suspect]
     Route: 042
     Dates: start: 20060802, end: 20100119

REACTIONS (1)
  - DRUG INEFFECTIVE [None]
